FAERS Safety Report 6309721-7 (Version None)
Quarter: 2009Q3

REPORT INFORMATION
  Report Type: 
  Country: None (occurrence: None)
  Receive Date: 20090814
  Receipt Date: 20090812
  Transmission Date: 20100115
  Serious: Yes (Death)
  Sender: FDA-Public Use
  Company Number: PHHY2009CL33733

PATIENT
  Age: 87 Year
  Sex: Female

DRUGS (3)
  1. STALEVO 100 [Suspect]
     Indication: PARKINSON'S DISEASE
     Dosage: UNK
     Route: 048
     Dates: start: 20090301
  2. QUETIAPINE FUMARATE [Concomitant]
  3. PROLOPA [Concomitant]

REACTIONS (1)
  - PERITONITIS [None]
